FAERS Safety Report 7088416-9 (Version None)
Quarter: 2010Q4

REPORT INFORMATION
  Report Type: 
  Country: None (occurrence: None)
  Receive Date: 20101028
  Receipt Date: 20101020
  Transmission Date: 20110411
  Serious: Yes (Congenital Anomaly)
  Sender: FDA-Public Use
  Company Number: 1000016968

PATIENT
  Sex: Female

DRUGS (1)
  1. LEXAPRO [Suspect]
     Dosage: TRANSPLACENTAL
     Route: 064
     Dates: end: 20081023

REACTIONS (3)
  - CONGENITAL PULMONARY VALVE ATRESIA [None]
  - MATERNAL DRUGS AFFECTING FOETUS [None]
  - VENTRICULAR HYPOPLASIA [None]
